FAERS Safety Report 23430449 (Version 1)
Quarter: 2024Q1

REPORT INFORMATION
  Report Type: Spontaneous
  Country: CN (occurrence: CN)
  Receive Date: 20240123
  Receipt Date: 20240123
  Transmission Date: 20240410
  Serious: Yes (Hospitalization, Other)
  Sender: FDA-Public Use
  Company Number: CN-NOVOPROD-1163296

PATIENT
  Age: 32 Year
  Sex: Male
  Weight: 120 kg

DRUGS (2)
  1. OZEMPIC [Suspect]
     Active Substance: SEMAGLUTIDE
     Dosage: 0.5 MG TILL NOW
  2. OZEMPIC [Suspect]
     Active Substance: SEMAGLUTIDE
     Indication: Type 2 diabetes mellitus
     Dosage: 0.25 MG FOR 7-8 TIMES
     Dates: start: 202304

REACTIONS (2)
  - Papillary thyroid cancer [Unknown]
  - Off label use [Unknown]

NARRATIVE: CASE EVENT DATE: 20230401
